FAERS Safety Report 5646706-8 (Version None)
Quarter: 2008Q1

REPORT INFORMATION
  Report Type: 
  Country: None (occurrence: None)
  Receive Date: 20080303
  Receipt Date: 20080220
  Transmission Date: 20080703
  Serious: Yes (Other)
  Sender: FDA-Public Use
  Company Number: US-AMGEN-QUU266248

PATIENT
  Sex: Female

DRUGS (1)
  1. ENBREL [Suspect]
     Indication: DRUG USE FOR UNKNOWN INDICATION
     Route: 058
     Dates: start: 20070101

REACTIONS (4)
  - BREAST CANCER STAGE II [None]
  - DERMATITIS BULLOUS [None]
  - INSOMNIA [None]
  - MUSCULOSKELETAL PAIN [None]
